FAERS Safety Report 10189574 (Version 3)
Quarter: 2014Q2

REPORT INFORMATION
  Report Type: Spontaneous
  Country: US (occurrence: US)
  Receive Date: 20140522
  Receipt Date: 20140626
  Transmission Date: 20141212
  Serious: Yes (Hospitalization)
  Sender: FDA-Public Use
  Company Number: US-GLAXOSMITHKLINE-A1025096A

PATIENT
  Age: 50 Year
  Sex: Male

DRUGS (4)
  1. FLOLAN [Suspect]
     Indication: PULMONARY ARTERIAL HYPERTENSION
     Dosage: 30NGKM CONTINUOUS
     Route: 042
     Dates: start: 20100714
  2. REVATIO [Concomitant]
  3. TRACLEER [Concomitant]
  4. COUMADIN [Concomitant]

REACTIONS (6)
  - Investigation [Unknown]
  - Catheter placement [Unknown]
  - Impaired self-care [Unknown]
  - Malaise [Unknown]
  - Transplant [Unknown]
  - Lung transplant [Unknown]
